FAERS Safety Report 20188510 (Version 1)
Quarter: 2021Q4

REPORT INFORMATION
  Report Type: Spontaneous
  Country: US (occurrence: US)
  Receive Date: 20211215
  Receipt Date: 20211215
  Transmission Date: 20220303
  Serious: Yes (Other)
  Sender: FDA-Public Use
  Company Number: US-PURDUE-USA-2020-0219576

PATIENT
  Sex: Male

DRUGS (1)
  1. HYDROCODONE BITARTRATE [Suspect]
     Active Substance: HYDROCODONE BITARTRATE
     Indication: Pain
     Dosage: UNKNOWN
     Route: 065

REACTIONS (9)
  - Mental impairment [Unknown]
  - Drug dependence [Unknown]
  - Drug withdrawal syndrome [Unknown]
  - Mood altered [Unknown]
  - Thinking abnormal [Unknown]
  - Behaviour disorder [Unknown]
  - Quality of life decreased [Unknown]
  - Anxiety [Unknown]
  - Helplessness [Unknown]
